FAERS Safety Report 12431700 (Version 1)
Quarter: 2016Q2

REPORT INFORMATION
  Report Type: Spontaneous
  Country: IT (occurrence: IT)
  Receive Date: 20160603
  Receipt Date: 20160603
  Transmission Date: 20160815
  Serious: Yes (Death)
  Sender: FDA-Public Use
  Company Number: IT-TEVA-664723ACC

PATIENT
  Age: 42 Year
  Sex: Male

DRUGS (3)
  1. TEMOZOLOMIDE. [Suspect]
     Active Substance: TEMOZOLOMIDE
     Indication: EPENDYMOMA
     Dosage: 150-200 MG/M2, QD
  2. ETOPOSIDE. [Suspect]
     Active Substance: ETOPOSIDE
     Indication: EPENDYMOMA
  3. CISPLATIN. [Suspect]
     Active Substance: CISPLATIN
     Indication: EPENDYMOMA

REACTIONS (2)
  - Ependymoma [Fatal]
  - Disease progression [Fatal]
